FAERS Safety Report 23933062 (Version 1)
Quarter: 2024Q2

REPORT INFORMATION
  Report Type: Spontaneous
  Country: IE (occurrence: IE)
  Receive Date: 20240603
  Receipt Date: 20240603
  Transmission Date: 20240716
  Serious: Yes (Hospitalization)
  Sender: FDA-Public Use
  Company Number: None

PATIENT
  Age: 39 Year
  Sex: Female

DRUGS (6)
  1. CETROTIDE [Suspect]
     Active Substance: CETRORELIX ACETATE
     Indication: Product used for unknown indication
     Dosage: UNK
     Route: 065
     Dates: start: 20230513, end: 20230526
  2. ESTRADIOL [Suspect]
     Active Substance: ESTRADIOL
     Indication: Product used for unknown indication
     Dosage: 100 UG (STRENGTH : 100 MICROGRAMS/24 HOURS, TRANSDERMAL PATCH)
     Route: 065
     Dates: start: 20230513, end: 20230516
  3. ESTRADIOL [Suspect]
     Active Substance: ESTRADIOL
     Indication: Product used for unknown indication
     Dosage: 6 MG
     Route: 065
     Dates: start: 20230513, end: 20230526
  4. GONAL-F [Suspect]
     Active Substance: FOLLITROPIN
     Indication: Product used for unknown indication
     Dosage: 450 IU
     Route: 065
     Dates: start: 20230513, end: 20230526
  5. LUVERIS [Suspect]
     Active Substance: LUTROPIN ALFA
     Indication: Product used for unknown indication
     Dosage: 225 IU
     Route: 065
     Dates: start: 20230513, end: 20230526
  6. Menorest [Concomitant]
     Indication: Product used for unknown indication
     Route: 065

REACTIONS (2)
  - Arterial thrombosis [Recovered/Resolved]
  - Vertebrobasilar artery dissection [Recovered/Resolved]

NARRATIVE: CASE EVENT DATE: 20230526
